FAERS Safety Report 7647333-3 (Version None)
Quarter: 2011Q3

REPORT INFORMATION
  Report Type: 
  Country: None (occurrence: None)
  Receive Date: 20110801
  Receipt Date: 20110720
  Transmission Date: 20111222
  Serious: Yes (Other)
  Sender: FDA-Public Use
  Company Number: US-ROCHE-791998

PATIENT
  Age: 74 Year
  Sex: Male

DRUGS (1)
  1. AVASTIN [Suspect]
     Dosage: PATIENT RECEIVED 12 CYCLES OF AVASTIN .CHEMOTHERAPY IS NOW HELD.
     Route: 042

REACTIONS (1)
  - AORTIC ANEURYSM [None]
